FAERS Safety Report 7617238-2 (Version None)
Quarter: 2011Q3

REPORT INFORMATION
  Report Type: 
  Country: None (occurrence: None)
  Receive Date: 20110718
  Receipt Date: 20110711
  Transmission Date: 20111222
  Serious: Yes (Other)
  Sender: FDA-Public Use
  Company Number: US-JNJFOC-20100805567

PATIENT
  Sex: Female

DRUGS (6)
  1. LEVOFLOXACIN [Suspect]
     Route: 048
     Dates: start: 20070301, end: 20090801
  2. LEVOFLOXACIN [Suspect]
     Route: 048
     Dates: start: 20070301, end: 20090801
  3. LEVOFLOXACIN [Suspect]
     Route: 048
  4. LEVOFLOXACIN [Suspect]
     Indication: CYSTITIS
     Route: 048
  5. LEVOFLOXACIN [Suspect]
     Indication: RESPIRATORY TRACT INFECTION
     Route: 048
  6. LEVOFLOXACIN [Suspect]
     Route: 048

REACTIONS (6)
  - TENDON RUPTURE [None]
  - TENDONITIS [None]
  - ROTATOR CUFF SYNDROME [None]
  - TENDON INJURY [None]
  - MENISCUS LESION [None]
  - DEPRESSION [None]
